FAERS Safety Report 5318572-1 (Version None)
Quarter: 2007Q2

REPORT INFORMATION
  Report Type: 
  Country: None (occurrence: None)
  Receive Date: 20070504
  Receipt Date: 20070504
  Transmission Date: 20071010
  Serious: Yes (Hospitalization)
  Sender: FDA-Public Use
  Company Number: None

PATIENT
  Sex: Male
  Weight: 105 kg

DRUGS (2)
  1. CYTARABINE [Suspect]
     Dosage: 460 MG
  2. DAUNORUBICIN HCL [Suspect]
     Dosage: 208 MG

REACTIONS (5)
  - CEREBRAL HAEMORRHAGE [None]
  - DYSPNOEA [None]
  - HYPERHIDROSIS [None]
  - MALAISE [None]
  - PAIN [None]
